FAERS Safety Report 16146287 (Version 3)
Quarter: 2019Q2

REPORT INFORMATION
  Report Type: Spontaneous
  Country: US (occurrence: US)
  Receive Date: 20190402
  Receipt Date: 20190409
  Transmission Date: 20190711
  Serious: Yes (Other)
  Sender: FDA-Public Use
  Company Number: US-PFIZER INC-2017267435

PATIENT
  Age: 67 Year
  Sex: Female
  Weight: 109 kg

DRUGS (5)
  1. LYRICA [Suspect]
     Active Substance: PREGABALIN
     Indication: BACK PAIN
     Dosage: 75 MG 2X/DAY (3 OF 25 MG IN MORNING AND 3 OF 25 MG AT NIGHT)
     Route: 048
     Dates: start: 20190329
  2. LYRICA [Suspect]
     Active Substance: PREGABALIN
     Indication: SCIATICA
  3. FLEXERIL [Concomitant]
     Active Substance: CYCLOBENZAPRINE HYDROCHLORIDE
     Indication: PAIN
     Dosage: 10 MG, 3X/DAY
  4. TRAMADOL. [Concomitant]
     Active Substance: TRAMADOL
     Indication: PAIN
     Dosage: 50 MG, 3X/DAY (50 MG ONE TABLET EVERY 8 HOURS AROUND THE CLOCK)
  5. LYRICA [Suspect]
     Active Substance: PREGABALIN
     Indication: FIBROMYALGIA
     Dosage: 75 MG 2X/DAY (3 OF 25 MG IN MORNING AND 3 OF 25 MG AT NIGHT)
     Route: 048

REACTIONS (2)
  - Intentional product use issue [Unknown]
  - Feeling abnormal [Unknown]

NARRATIVE: CASE EVENT DATE: 20190320
